FAERS Safety Report 6026597-6 (Version None)
Quarter: 2008Q4

REPORT INFORMATION
  Report Type: 
  Country: None (occurrence: None)
  Receive Date: 20081231
  Receipt Date: 20081217
  Transmission Date: 20090506
  Serious: Yes (Other)
  Sender: FDA-Public Use
  Company Number: 038473

PATIENT
  Age: 53 Year
  Sex: Female
  Weight: 52.2 kg

DRUGS (7)
  1. ADDERALL 10 [Suspect]
     Indication: ATTENTION DEFICIT/HYPERACTIVITY DISORDER
  2. BUSPAR [Suspect]
  3. CELEBREX [Suspect]
     Indication: ARTHRITIS
     Dosage: 200 MG, 2 IN 1 D,
     Dates: start: 20081001, end: 20081101
  4. CHANTIX [Suspect]
     Indication: SMOKING CESSATION THERAPY
     Dosage: 0.5 MG, 1 IN 1 D,
     Dates: start: 20081101
  5. EFFEXOR [Suspect]
     Indication: DEPRESSION
     Dosage: 75 MG, 1 IN 1 D,
  6. VALIUM [Suspect]
     Dosage: 5 MG, 2 IN 1 D,
  7. DEPAKOTE [Concomitant]

REACTIONS (9)
  - AGITATION [None]
  - CHEST DISCOMFORT [None]
  - CONDITION AGGRAVATED [None]
  - DEPRESSION [None]
  - DYSPNOEA [None]
  - ECONOMIC PROBLEM [None]
  - FEELING ABNORMAL [None]
  - NAUSEA [None]
  - SUICIDAL IDEATION [None]
